FAERS Safety Report 24191193 (Version 1)
Quarter: 2024Q3

REPORT INFORMATION
  Report Type: Spontaneous
  Country: US (occurrence: US)
  Receive Date: 20240808
  Receipt Date: 20240808
  Transmission Date: 20241017
  Serious: Yes (Hospitalization)
  Sender: AMGEN
  Company Number: US-AMGEN-USASP2024151125

PATIENT
  Age: 38 Year
  Sex: Male

DRUGS (2)
  1. FILGRASTIM [Suspect]
     Active Substance: FILGRASTIM
     Indication: Pancytopenia
     Dosage: UNK
     Route: 065
  2. FILGRASTIM [Suspect]
     Active Substance: FILGRASTIM
     Indication: Off label use

REACTIONS (10)
  - Tonsillitis bacterial [Recovered/Resolved]
  - Tonsillitis fungal [Recovered/Resolved]
  - Infective glossitis [Recovered/Resolved]
  - Oral infection [Recovered/Resolved]
  - Necrotic lymphadenopathy [Recovered/Resolved]
  - Tonsillar haemorrhage [Recovered/Resolved]
  - Tonsillar inflammation [Recovered/Resolved]
  - Dysphagia [Recovered/Resolved]
  - Off label use [Unknown]
  - Drug ineffective for unapproved indication [Unknown]
